FAERS Safety Report 18461322 (Version 1)
Quarter: 2020Q4

REPORT INFORMATION
  Report Type: Other
  Country: CN (occurrence: CN)
  Receive Date: 20201104
  Receipt Date: 20201104
  Transmission Date: 20210114
  Serious: Yes (Other)
  Sender: FDA-Public Use
  Company Number: CN-ROCHE-2707440

PATIENT
  Age: 65 Year
  Sex: Male

DRUGS (4)
  1. BENOXIL [Concomitant]
     Active Substance: BENOXINATE HYDROCHLORIDE
     Indication: ANAESTHETIC OPHTHALMIC PROCEDURE
     Dosage: 3 DROPS
     Route: 065
     Dates: start: 20200928, end: 20200928
  2. LUCENTIS [Suspect]
     Active Substance: RANIBIZUMAB
     Route: 031
     Dates: start: 20201026, end: 20201026
  3. LUCENTIS [Suspect]
     Active Substance: RANIBIZUMAB
     Indication: RETINAL VEIN OCCLUSION
     Route: 031
     Dates: start: 20200928, end: 20200928
  4. BENOXIL [Concomitant]
     Active Substance: BENOXINATE HYDROCHLORIDE
     Dosage: 3 DROPS
     Route: 065
     Dates: start: 20201026, end: 20201026

REACTIONS (2)
  - Hypersensitivity [Recovered/Resolved]
  - Pruritus [Recovered/Resolved]

NARRATIVE: CASE EVENT DATE: 20201001
